FAERS Safety Report 20681117 (Version 1)
Quarter: 2022Q2

REPORT INFORMATION
  Report Type: Report from Study
  Country: US (occurrence: US)
  Receive Date: 20220406
  Receipt Date: 20220406
  Transmission Date: 20220721
  Serious: No
  Sender: FDA-Public Use
  Company Number: US-KYOWAKIRIN-2022BKK004677

PATIENT

DRUGS (2)
  1. CRYSVITA [Suspect]
     Active Substance: BUROSUMAB-TWZA
     Indication: Hereditary hypophosphataemic rickets
     Dosage: COMBINED STRENGTHS OF 30 MG AND 10 MG TO ACHIEVE DOSE OF 70 MG, EVERY 2 WEEKS
     Route: 058
  2. CRYSVITA [Suspect]
     Active Substance: BUROSUMAB-TWZA
     Indication: Hereditary hypophosphataemic rickets
     Dosage: COMBINED STRENGTHS OF 30 MG AND 10 MG TO ACHIEVE DOSE OF 70 MG, EVERY 2 WEEKS
     Route: 058

REACTIONS (1)
  - Streptococcal infection [Unknown]
